FAERS Safety Report 7117500-6 (Version None)
Quarter: 2010Q4

REPORT INFORMATION
  Report Type: 
  Country: None (occurrence: None)
  Receive Date: 20101122
  Receipt Date: 20101119
  Transmission Date: 20110411
  Serious: Yes (Death, Hospitalization)
  Sender: FDA-Public Use
  Company Number: PHHY2010US73858

PATIENT
  Sex: Female
  Weight: 85.44 kg

DRUGS (1)
  1. EXJADE [Suspect]
     Indication: MYELODYSPLASTIC SYNDROME
     Dosage: 1500 MG/DAY
     Route: 048
     Dates: start: 20090501, end: 20101114

REACTIONS (4)
  - DRUG DOSE OMISSION [None]
  - FALL [None]
  - PNEUMONIA [None]
  - UPPER LIMB FRACTURE [None]
